FAERS Safety Report 6522110-5 (Version None)
Quarter: 2009Q4

REPORT INFORMATION
  Report Type: 
  Country: None (occurrence: None)
  Receive Date: 20091222
  Receipt Date: 20091215
  Transmission Date: 20100525
  Serious: Yes (Hospitalization)
  Sender: FDA-Public Use
  Company Number: 2009SP039927

PATIENT
  Age: 56 Year
  Sex: Female

DRUGS (4)
  1. PEG-INTRON [Suspect]
     Indication: HEPATITIS C
     Dosage: 180 MCG; QW; SC
     Route: 058
     Dates: start: 20091009, end: 20091127
  2. RIBAVIRIN [Suspect]
     Indication: HEPATITIS C
     Dosage: 800 MG; QD; PO
     Route: 048
     Dates: start: 20091009, end: 20091127
  3. ELTROMBOPAG [Suspect]
     Indication: THROMBOCYTOPENIA
     Dosage: 25 MG; PO
     Route: 048
     Dates: start: 20090921, end: 20091008
  4. BLINDED ELTROMBOPAG [Suspect]
     Indication: THROMBOCYTOPENIA
     Dosage: QD; PO
     Route: 048
     Dates: start: 20091009, end: 20091127

REACTIONS (8)
  - ABDOMINAL PAIN [None]
  - ASCITES [None]
  - CONSTIPATION [None]
  - HEPATIC CIRRHOSIS [None]
  - PORTAL HYPERTENSION [None]
  - SPLENIC VARICES [None]
  - SPLENOMEGALY [None]
  - VARICES OESOPHAGEAL [None]
